FAERS Safety Report 12238216 (Version 1)
Quarter: 2016Q2

REPORT INFORMATION
  Report Type: Spontaneous
  Country: US (occurrence: None)
  Receive Date: 20160404
  Receipt Date: 20160404
  Transmission Date: 20160815
  Serious: No
  Sender: FDA-Public Use
  Company Number: None

PATIENT
  Age: 66 Year
  Sex: Female

DRUGS (5)
  1. IBRANCE [Suspect]
     Active Substance: PALBOCICLIB
     Indication: BREAST CANCER
     Dosage: 1 CAPSULE QD PO
     Route: 048
     Dates: start: 20160229, end: 20160310
  2. LETROZOLE. [Concomitant]
     Active Substance: LETROZOLE
  3. LORAZEPAM. [Concomitant]
     Active Substance: LORAZEPAM
  4. CARTIA XT [Concomitant]
     Active Substance: DILTIAZEM HYDROCHLORIDE
  5. FLUTICASONE PROPIONATE. [Concomitant]
     Active Substance: FLUTICASONE PROPIONATE

REACTIONS (2)
  - Fatigue [None]
  - Salivary gland disorder [None]

NARRATIVE: CASE EVENT DATE: 20160310
